FAERS Safety Report 20631610 (Version 1)
Quarter: 2022Q1

REPORT INFORMATION
  Report Type: Spontaneous
  Country: US (occurrence: None)
  Receive Date: 20220323
  Receipt Date: 20220323
  Transmission Date: 20220423
  Serious: Yes (Hospitalization)
  Sender: FDA-Public Use
  Company Number: None

PATIENT
  Age: 50 Year
  Sex: Female
  Weight: 43.65 kg

DRUGS (5)
  1. AIMOVIG [Suspect]
     Active Substance: ERENUMAB-AOOE
     Indication: Migraine
     Dosage: OTHER FREQUENCY : EVERY 28 DAYS;?OTHER ROUTE : IMJECTION;?
     Route: 050
     Dates: start: 20190301, end: 20220213
  2. IMITREX [Concomitant]
     Active Substance: SUMATRIPTAN SUCCINATE
  3. WELLBUTRIN [Concomitant]
     Active Substance: BUPROPION HYDROCHLORIDE
  4. TRAZODONE [Concomitant]
     Active Substance: TRAZODONE HYDROCHLORIDE
  5. GABAPENTIN [Concomitant]
     Active Substance: GABAPENTIN

REACTIONS (9)
  - Constipation [None]
  - Septic shock [None]
  - Hypovolaemia [None]
  - Tachycardia [None]
  - Abdominal distension [None]
  - Renal failure [None]
  - Malnutrition [None]
  - Feeding disorder [None]
  - Weight decreased [None]

NARRATIVE: CASE EVENT DATE: 20220213
